FAERS Safety Report 9046313 (Version 1)
Quarter: 2013Q1

REPORT INFORMATION
  Report Type: Spontaneous
  Country: US (occurrence: US)
  Receive Date: 20130201
  Receipt Date: 20130201
  Transmission Date: 20140127
  Serious: No
  Sender: FDA-Public Use
  Company Number: US-JNJFOC-20130112537

PATIENT
  Sex: Female
  Weight: 75.3 kg

DRUGS (3)
  1. FENTANYL [Suspect]
     Indication: ARTHRALGIA
     Dosage: REPORTED AS 13 UG PATCH
     Route: 062
     Dates: end: 2012
  2. FENTANYL [Suspect]
     Indication: ARTHRALGIA
     Route: 062
     Dates: start: 2012
  3. OXYCODONE [Concomitant]
     Indication: BREAKTHROUGH PAIN
     Dosage: AS NECESSARY
     Route: 048
     Dates: start: 2011

REACTIONS (4)
  - Memory impairment [Not Recovered/Not Resolved]
  - Pain [Recovered/Resolved]
  - Wrong technique in drug usage process [Unknown]
  - Drug prescribing error [Unknown]
